FAERS Safety Report 10872303 (Version 1)
Quarter: 2015Q1

REPORT INFORMATION
  Report Type: Spontaneous
  Country: US (occurrence: None)
  Receive Date: 20150220
  Receipt Date: 20150220
  Transmission Date: 20150721
  Serious: Yes (Other)
  Sender: FDA-Public Use
  Company Number: None

PATIENT
  Sex: Female

DRUGS (18)
  1. CYCLOBENZAPRINE [Concomitant]
     Active Substance: CYCLOBENZAPRINE
  2. HYDROCODONE BITARTRATE AND ACETAMINOPHEN [Concomitant]
     Active Substance: ACETAMINOPHEN\HYDROCODONE BITARTRATE
  3. ENBREL [Suspect]
     Active Substance: ETANERCEPT
     Indication: RHEUMATOID ARTHRITIS
     Route: 058
     Dates: start: 20090801
  4. FLBERCON 625MG TABLETS [Concomitant]
  5. ACZONE 5% GEL 30GM? [Concomitant]
  6. NEXIUM 40MG CAPSULES? [Concomitant]
  7. ENBREL [Concomitant]
     Active Substance: ETANERCEPT
  8. HYDROXYCHLOROQUINE 200MG [Concomitant]
     Active Substance: HYDROXYCHLOROQUINE
  9. VIGAMOX 0.5% OPHTH SOLUTION [Concomitant]
  10. MUPIROCIN 2% CREAM [Concomitant]
  11. KETOCONAZOLE 2%, SHAMPOO [Concomitant]
     Active Substance: KETOCONAZOLE
  12. NYSTATIN. [Concomitant]
     Active Substance: NYSTATIN
  13. DOC-Q-LACE 100MG CAPSULES [Concomitant]
  14. DUREZOL 0.05% OPHTH EMULS [Concomitant]
  15. LYRICA 75MG CAPSULES [Concomitant]
  16. FIBER CON 625MG TABLETS [Concomitant]
  17. NEXIUM 40MG CAPSULES? [Concomitant]
  18. B-D SHARPS [Concomitant]

REACTIONS (1)
  - Injection site mass [None]
